FAERS Safety Report 7168346-4 (Version None)
Quarter: 2010Q4

REPORT INFORMATION
  Report Type: 
  Country: None (occurrence: None)
  Receive Date: 20101216
  Receipt Date: 20101209
  Transmission Date: 20110411
  Serious: Yes (Death, Life-Threatening, Hospitalization)
  Sender: FDA-Public Use
  Company Number: AT-MERCK-1012AUT00003

PATIENT
  Age: 46 Year
  Sex: Male

DRUGS (4)
  1. CANCIDAS [Suspect]
     Indication: SYSTEMIC INFLAMMATORY RESPONSE SYNDROME
     Route: 065
  2. MEROPENEM [Suspect]
     Indication: SYSTEMIC INFLAMMATORY RESPONSE SYNDROME
     Route: 065
  3. LINEZOLID [Suspect]
     Indication: SYSTEMIC INFLAMMATORY RESPONSE SYNDROME
     Route: 065
  4. PENICILLIN (UNSPECIFIED) [Suspect]
     Indication: SYSTEMIC INFLAMMATORY RESPONSE SYNDROME
     Route: 065

REACTIONS (2)
  - DIARRHOEA [None]
  - ENTEROCOLITIS [None]
